FAERS Safety Report 12704313 (Version 1)
Quarter: 2016Q3

REPORT INFORMATION
  Report Type: Report from Study
  Country: US (occurrence: US)
  Receive Date: 20160831
  Receipt Date: 20160831
  Transmission Date: 20161109
  Serious: Yes (Hospitalization, Other)
  Sender: FDA-Public Use
  Company Number: US-SAOL THERAPEUTICS-2016SAO00502

PATIENT
  Age: 33 Year
  Sex: Female

DRUGS (3)
  1. COMPOUNDED BACLOFEN [Suspect]
     Active Substance: BACLOFEN
     Dosage: 375.1 ?G, \DAY
     Route: 037
     Dates: start: 20160716
  2. COMPOUNDED BACLOFEN [Suspect]
     Active Substance: BACLOFEN
     Indication: SPINAL CORD INJURY
     Dosage: 410.1 ?G, \DAY
     Route: 037
     Dates: start: 20150708, end: 20160716
  3. COMPOUNDED BACLOFEN [Suspect]
     Active Substance: BACLOFEN
     Indication: MUSCLE SPASTICITY
     Dosage: 370 ?G, \DAY
     Route: 037
     Dates: end: 20150708

REACTIONS (3)
  - Pruritus [Recovered/Resolved]
  - Muscular weakness [Recovered/Resolved]
  - Muscle spasticity [Recovered/Resolved]

NARRATIVE: CASE EVENT DATE: 20150708
